FAERS Safety Report 19031822 (Version 1)
Quarter: 2021Q1

REPORT INFORMATION
  Report Type: Spontaneous
  Country: CA (occurrence: CA)
  Receive Date: 20210319
  Receipt Date: 20210319
  Transmission Date: 20210420
  Serious: Yes (Life-Threatening, Other)
  Sender: FDA-Public Use
  Company Number: CA-PFIZER INC-2021281137

PATIENT
  Age: 16 Year
  Sex: Female
  Weight: 102 kg

DRUGS (78)
  1. AZACTAM [Concomitant]
     Active Substance: AZTREONAM
  2. DOXYCYCLINE. [Concomitant]
     Active Substance: DOXYCYCLINE
  3. EMEND [Concomitant]
     Active Substance: APREPITANT
  4. ETOPOSIDE. [Concomitant]
     Active Substance: ETOPOSIDE
  5. FAMOTIDINE. [Concomitant]
     Active Substance: FAMOTIDINE
  6. FUROSEMIDE. [Concomitant]
     Active Substance: FUROSEMIDE
  7. IBUPROFEN. [Concomitant]
     Active Substance: IBUPROFEN
  8. LORAZEPAM. [Concomitant]
     Active Substance: LORAZEPAM
  9. ONDANSETRON [Concomitant]
     Active Substance: ONDANSETRON
  10. PENTAMIDINE ISETHIONATE. [Concomitant]
     Active Substance: PENTAMIDINE ISETHIONATE
  11. TRANEXAMIC ACID. [Concomitant]
     Active Substance: TRANEXAMIC ACID
  12. AMITRIPTYLINE [Concomitant]
     Active Substance: AMITRIPTYLINE
  13. CEFAZOLIN [Concomitant]
     Active Substance: CEFAZOLIN
  14. CEPHALEXIN [CEFALEXIN] [Concomitant]
     Active Substance: CEPHALEXIN
  15. FENTANYL. [Concomitant]
     Active Substance: FENTANYL
  16. METHADONE [Concomitant]
     Active Substance: METHADONE HYDROCHLORIDE
  17. PANTOPRAZOLE [Concomitant]
     Active Substance: PANTOPRAZOLE
  18. PREDNISOLONE. [Concomitant]
     Active Substance: PREDNISOLONE
  19. SPIRONOLACTONE. [Concomitant]
     Active Substance: SPIRONOLACTONE
  20. SUCRALFATE. [Concomitant]
     Active Substance: SUCRALFATE
  21. ACETAMINOPHEN. [Concomitant]
     Active Substance: ACETAMINOPHEN
  22. AMPHOTERICIN B. [Concomitant]
     Active Substance: AMPHOTERICIN B
  23. CETIRIZINE [Concomitant]
     Active Substance: CETIRIZINE HYDROCHLORIDE
  24. DIMENHYDRINATE. [Concomitant]
     Active Substance: DIMENHYDRINATE
  25. FILGRASTIM [Concomitant]
     Active Substance: FILGRASTIM
  26. GABAPENTIN. [Concomitant]
     Active Substance: GABAPENTIN
  27. HYDROCORTISONE. [Concomitant]
     Active Substance: HYDROCORTISONE
  28. MELATONIN [Concomitant]
     Active Substance: MELATONIN
  29. OLANZAPINE. [Concomitant]
     Active Substance: OLANZAPINE
  30. CYTARABINE. [Suspect]
     Active Substance: CYTARABINE
     Indication: ACUTE MYELOID LEUKAEMIA
     Dosage: 2100 MG, 1 EVERY 12 HOURS
     Route: 042
  31. ALLOPURINOL. [Concomitant]
     Active Substance: ALLOPURINOL
  32. CLINDAMYCIN. [Concomitant]
     Active Substance: CLINDAMYCIN
     Route: 065
  33. ENOXAPARIN [Concomitant]
     Active Substance: ENOXAPARIN
  34. FLUCONAZOLE. [Concomitant]
     Active Substance: FLUCONAZOLE
  35. HYDROMORPHONE [Concomitant]
     Active Substance: HYDROMORPHONE
  36. MEROPENEM. [Concomitant]
     Active Substance: MEROPENEM
  37. NABILONE [Concomitant]
     Active Substance: NABILONE
  38. NALOXONE [Concomitant]
     Active Substance: NALOXONE
  39. SENNOSIDES. [Concomitant]
     Active Substance: SENNOSIDES
  40. URSODEOXYCHOLIC ACID [Concomitant]
     Active Substance: URSODIOL
  41. VALACYCLOVIR [Concomitant]
     Active Substance: VALACYCLOVIR HYDROCHLORIDE
  42. CLONIDINE. [Concomitant]
     Active Substance: CLONIDINE
  43. DIPHENHYDRAMINE. [Concomitant]
     Active Substance: DIPHENHYDRAMINE
  44. LEUPROLIDE [LEUPRORELIN] [Concomitant]
     Active Substance: LEUPROLIDE ACETATE
  45. LIDOCAINE. [Concomitant]
     Active Substance: LIDOCAINE
  46. MYCAMINE [Concomitant]
     Active Substance: MICAFUNGIN SODIUM
  47. SULFADIAZINE. [Concomitant]
     Active Substance: SULFADIAZINE
  48. TRIMETHOPRIM SULFAMETHOXAZOLE [Concomitant]
     Active Substance: SULFAMETHOXAZOLE\TRIMETHOPRIM
  49. VANCOMYCIN [Concomitant]
     Active Substance: VANCOMYCIN
  50. ZINECARD [DEXRAZOXANE] [Concomitant]
  51. ALUMINIUM HYDROXID [ALUMINIUM HYDROXIDE;MAGNESIUM HYDROXIDE] [Concomitant]
  52. METOCLOPRAMIDE. [Concomitant]
     Active Substance: METOCLOPRAMIDE
  53. METRONIDAZOLE. [Concomitant]
     Active Substance: METRONIDAZOLE
  54. MORPHINE [Concomitant]
     Active Substance: MORPHINE
  55. NIFEDIPINE. [Concomitant]
     Active Substance: NIFEDIPINE
  56. POLYETHYLENE GLYCOL;PROPYLENE GLYCOL [Concomitant]
  57. POTASSIUM [Concomitant]
     Active Substance: POTASSIUM
  58. TOBRAMYCIN. [Concomitant]
     Active Substance: TOBRAMYCIN
  59. MITOXANTRONE [Suspect]
     Active Substance: MITOXANTRONE HYDROCHLORIDE
     Indication: ACUTE MYELOID LEUKAEMIA
     Dosage: 25 MG
     Route: 042
  60. CLOTRIMAZOLE. [Concomitant]
     Active Substance: CLOTRIMAZOLE
  61. HEPARIN CALCIUM [Concomitant]
     Active Substance: HEPARIN CALCIUM
  62. LANSOPRAZOLE. [Concomitant]
     Active Substance: LANSOPRAZOLE
  63. MAGNESIUM [Concomitant]
     Active Substance: MAGNESIUM
  64. NORETHINDRONE [NORETHISTERONE] [Concomitant]
     Active Substance: NORETHINDRONE
  65. PIPERACILLIN/TAZOBACTAM [Concomitant]
     Active Substance: PIPERACILLIN SODIUM\TAZOBACTAM SODIUM
  66. SODIUM SULFATE [Concomitant]
     Active Substance: SODIUM SULFATE
  67. ZINC. [Concomitant]
     Active Substance: ZINC
  68. CALCIUM [Concomitant]
     Active Substance: CALCIUM
  69. CIPROFLOXACIN. [Concomitant]
     Active Substance: CIPROFLOXACIN
  70. DAUNORUBICIN [Concomitant]
     Active Substance: DAUNORUBICIN
  71. HYDROXYZINE [Concomitant]
     Active Substance: HYDROXYZINE HYDROCHLORIDE
  72. KETAMINE [Concomitant]
     Active Substance: KETAMINE
  73. LEVOFLOXACIN. [Concomitant]
     Active Substance: LEVOFLOXACIN
  74. OXYBUTYNIN. [Concomitant]
     Active Substance: OXYBUTYNIN CHLORIDE
     Route: 065
  75. PREGABALIN. [Concomitant]
     Active Substance: PREGABALIN
  76. RANITIDINE. [Concomitant]
     Active Substance: RANITIDINE
  77. SODIUM [Concomitant]
     Active Substance: SODIUM
  78. VITAMIN K [Concomitant]
     Active Substance: PHYTONADIONE

REACTIONS (4)
  - Transfusion [Recovered/Resolved]
  - Hidradenitis [Recovered/Resolved]
  - Aplastic anaemia [Recovered/Resolved]
  - Neutropenic colitis [Recovered/Resolved]
